FAERS Safety Report 24891479 (Version 1)
Quarter: 2025Q1

REPORT INFORMATION
  Report Type: Spontaneous
  Country: US (occurrence: US)
  Receive Date: 20250127
  Receipt Date: 20250127
  Transmission Date: 20250409
  Serious: No
  Sender: PFIZER
  Company Number: US-PFIZER INC-202500016439

PATIENT
  Sex: Female
  Weight: 99.32 kg

DRUGS (1)
  1. COLESTID [Suspect]
     Active Substance: COLESTIPOL HYDROCHLORIDE
     Indication: Diarrhoea

REACTIONS (3)
  - Extrasystoles [Unknown]
  - Off label use [Unknown]
  - Drug effective for unapproved indication [Unknown]
